FAERS Safety Report 4964481-7 (Version None)
Quarter: 2006Q1

REPORT INFORMATION
  Report Type: 
  Country: None (occurrence: None)
  Receive Date: 20060331
  Receipt Date: 20060316
  Transmission Date: 20060701
  Serious: Yes (Death, Life-Threatening, Other)
  Sender: FDA-Public Use
  Company Number: CA200512001795

PATIENT
  Age: 53 Year
  Sex: Female

DRUGS (9)
  1. XIGRIS [Suspect]
     Dates: start: 20051206, end: 20051206
  2. PREDNISONE TAB [Concomitant]
  3. ASPIRIN [Concomitant]
  4. URSODIOL [Concomitant]
  5. AZATHROPRINE (AZATHROPRINE) [Concomitant]
  6. SYNTHROID [Concomitant]
  7. RAMIPRIL [Concomitant]
  8. GLYBURIDE [Concomitant]
  9. HEPARIN [Concomitant]

REACTIONS (1)
  - GASTROINTESTINAL HAEMORRHAGE [None]
